FAERS Safety Report 4454353-9 (Version None)
Quarter: 2004Q3

REPORT INFORMATION
  Report Type: 
  Country: None (occurrence: None)
  Receive Date: 20040826
  Receipt Date: 20040602
  Transmission Date: 20050211
  Serious: No
  Sender: FDA-Public Use
  Company Number: WAES 0406USA00250

PATIENT
  Sex: Male

DRUGS (6)
  1. ZETIA [Suspect]
     Dosage: 10 MG/ DAILY/ PO
     Route: 048
     Dates: start: 20031201, end: 20040519
  2. ALTACE [Concomitant]
  3. NORVASC [Concomitant]
  4. OCUVITE [Concomitant]
  5. TOPROL-XL [Concomitant]
  6. ASPIRIN [Concomitant]

REACTIONS (4)
  - ARTHRALGIA [None]
  - MUSCULOSKELETAL DISCOMFORT [None]
  - MYALGIA [None]
  - PAIN IN EXTREMITY [None]
